FAERS Safety Report 14285033 (Version 2)
Quarter: 2018Q1

REPORT INFORMATION
  Report Type: Report from Study
  Country: GR (occurrence: GR)
  Receive Date: 20171214
  Receipt Date: 20180111
  Transmission Date: 20180509
  Serious: Yes (Hospitalization)
  Sender: FDA-Public Use
  Company Number: GR-ROCHE-2034701

PATIENT
  Age: 80 Year
  Sex: Female
  Weight: 63 kg

DRUGS (13)
  1. ATEZOLIZUMAB. [Suspect]
     Active Substance: ATEZOLIZUMAB
     Indication: COLORECTAL CANCER METASTATIC
     Dosage: DATE OF MOST RECENT DOSE OF STUDY DRUG PRIOR TO AE ONSET 14 NOV 2017
     Route: 042
     Dates: start: 20171114
  2. LAPRAZOL [Concomitant]
     Active Substance: LANSOPRAZOLE
     Indication: PYREXIA
     Route: 065
     Dates: start: 20171205
  3. MEPROLEN [Concomitant]
     Indication: PYREXIA
     Route: 065
     Dates: start: 20171130, end: 20171205
  4. CIPROXIN [Concomitant]
     Active Substance: CIPROFLOXACIN
     Route: 065
     Dates: start: 20171205
  5. THYROHORMONE [Concomitant]
     Active Substance: LEVOTHYROXINE SODIUM
     Route: 065
     Dates: start: 2007
  6. TAZOCIN [Concomitant]
     Active Substance: PIPERACILLIN SODIUM\TAZOBACTAM SODIUM
     Indication: PYREXIA
     Route: 065
     Dates: start: 20171130, end: 20171205
  7. VONCON [Concomitant]
     Active Substance: VANCOMYCIN HYDROCHLORIDE
     Indication: PYREXIA
     Route: 065
     Dates: start: 20171130, end: 20171205
  8. ZINACEF [Concomitant]
     Active Substance: CEFUROXIME SODIUM
     Indication: PYREXIA
     Route: 065
     Dates: start: 20171129, end: 20171130
  9. CIPROXIN [Concomitant]
     Active Substance: CIPROFLOXACIN
     Indication: PYREXIA
     Route: 065
     Dates: start: 20171130, end: 20171205
  10. TAMIFLU [Concomitant]
     Active Substance: OSELTAMIVIR PHOSPHATE
     Indication: PYREXIA
     Route: 065
     Dates: start: 20171130
  11. COBIMETINIB. [Suspect]
     Active Substance: COBIMETINIB
     Indication: COLORECTAL CANCER METASTATIC
     Dosage: DATE OF MOST RECENT DOSE OF STUDY DRUG 2 PRIOR TO AE ONSET: 25 NOV 2017
     Route: 048
  12. AUGMENTIN [Concomitant]
     Active Substance: AMOXICILLIN\CLAVULANATE POTASSIUM
     Indication: PYREXIA
     Route: 065
     Dates: start: 20171205
  13. ULTRA LEVURE [Concomitant]
     Active Substance: SACCHAROMYCES CEREVISIAE
     Indication: PYREXIA
     Route: 065
     Dates: start: 20171205

REACTIONS (2)
  - Atrial fibrillation [Recovered/Resolved]
  - Blood creatine phosphokinase increased [Recovered/Resolved]

NARRATIVE: CASE EVENT DATE: 20171129
